FAERS Safety Report 11603757 (Version 1)
Quarter: 2015Q4

REPORT INFORMATION
  Report Type: Spontaneous
  Country: US (occurrence: US)
  Receive Date: 20151007
  Receipt Date: 20151007
  Transmission Date: 20160304
  Serious: No
  Sender: FDA-Public Use
  Company Number: US-PAR PHARMACEUTICAL, INC-2014SCPR009354

PATIENT

DRUGS (4)
  1. SYNTHROID [Concomitant]
     Active Substance: LEVOTHYROXINE SODIUM
     Indication: HYPERTHYROIDISM
     Dosage: 1 DF, OD
     Route: 048
     Dates: start: 2007
  2. FENTANYL TRANSDERMAL SYSTEM [Suspect]
     Active Substance: FENTANYL
     Indication: ARTHRALGIA
     Dosage: 1 PATCH, EVERY 72 HOURS
     Route: 062
     Dates: start: 201406, end: 20140814
  3. DICYCLOMINE                        /00068601/ [Concomitant]
     Active Substance: DICYCLOMINE HYDROCHLORIDE
     Indication: ABDOMINAL PAIN
     Dosage: UNK, PRN
     Route: 048
     Dates: start: 2011
  4. HYDROCODONE/APAP [Concomitant]
     Active Substance: ACETAMINOPHEN\HYDROCODONE BITARTRATE
     Indication: BREAKTHROUGH PAIN
     Dosage: UNK, PRN
     Route: 048
     Dates: start: 2009

REACTIONS (7)
  - Application site reaction [Recovered/Resolved]
  - Application site urticaria [Recovered/Resolved]
  - Application site pain [Recovered/Resolved]
  - Application site fissure [Recovered/Resolved]
  - Application site swelling [Recovered/Resolved]
  - Application site erythema [Recovered/Resolved]
  - Product adhesion issue [Unknown]

NARRATIVE: CASE EVENT DATE: 201406
